FAERS Safety Report 19467699 (Version 1)
Quarter: 2021Q2

REPORT INFORMATION
  Report Type: Spontaneous
  Country: US (occurrence: US)
  Receive Date: 20210628
  Receipt Date: 20210628
  Transmission Date: 20210717
  Serious: Yes (Other)
  Sender: FDA-Public Use
  Company Number: None

PATIENT
  Age: 47 Year
  Sex: Male
  Weight: 92.99 kg

DRUGS (3)
  1. BOTOX UNITS VIAL MIXED WITH NORMAL SALINE [Concomitant]
  2. BOTOX [Suspect]
     Active Substance: ONABOTULINUMTOXINA
     Indication: MIGRAINE
     Dosage: ?          OTHER DOSE:50 UNITS/ML;OTHER FREQUENCY:EVERY 12 WEEKS ;?
     Route: 028
     Dates: start: 20210609, end: 20210609
  3. 0.9% SODIUM CHLORIDE [Suspect]
     Active Substance: SODIUM CHLORIDE
     Route: 028

REACTIONS (1)
  - Hypersensitivity [None]

NARRATIVE: CASE EVENT DATE: 20210609
